FAERS Safety Report 5684429-X (Version None)
Quarter: 2008Q1

REPORT INFORMATION
  Report Type: 
  Country: None (occurrence: None)
  Receive Date: 20080327
  Receipt Date: 20080327
  Transmission Date: 20080703
  Serious: No
  Sender: FDA-Public Use
  Company Number: None

PATIENT
  Sex: Female
  Weight: 81.6475 kg

DRUGS (2)
  1. ZICAM [Suspect]
     Indication: NASOPHARYNGITIS
     Dosage: ONE SPRAY  ONCE  NASAL
     Route: 045
     Dates: start: 20040101, end: 20040101
  2. ZICAM [Suspect]
     Indication: PROPHYLAXIS
     Dosage: ONE SPRAY  ONCE  NASAL
     Route: 045
     Dates: start: 20040101, end: 20040101

REACTIONS (3)
  - AGEUSIA [None]
  - ANOSMIA [None]
  - PHARMACEUTICAL PRODUCT COMPLAINT [None]
